FAERS Safety Report 22311995 (Version 1)
Quarter: 2023Q2

REPORT INFORMATION
  Report Type: Other
  Country: IN (occurrence: None)
  Receive Date: 20230512
  Receipt Date: 20230512
  Transmission Date: 20230722
  Serious: Yes (Death)
  Sender: FDA-Public Use
  Company Number: IN-ROCHE-3348297

PATIENT
  Age: 58 Year
  Sex: Male

DRUGS (4)
  1. MYCOPHENOLATE MOFETIL [Suspect]
     Active Substance: MYCOPHENOLATE MOFETIL
     Indication: Renal transplant
     Route: 048
     Dates: start: 20200604
  2. PREDNISOLONE [Concomitant]
     Active Substance: PREDNISOLONE
  3. SEPTRAN DS [Concomitant]
  4. CILNIDIPINE [Concomitant]
     Active Substance: CILNIDIPINE

REACTIONS (1)
  - Death [Fatal]
